FAERS Safety Report 7453302-9 (Version None)
Quarter: 2011Q2

REPORT INFORMATION
  Report Type: 
  Country: None (occurrence: None)
  Receive Date: 20110502
  Receipt Date: 20101206
  Transmission Date: 20111010
  Serious: No
  Sender: FDA-Public Use
  Company Number: US-ASTRAZENECA-2010SE58058

PATIENT
  Sex: Female

DRUGS (4)
  1. PULMICORT FLEXHALER [Suspect]
     Route: 055
  2. ZOMIG [Suspect]
     Route: 045
  3. NEXIUM [Suspect]
     Route: 048
  4. RHINOCORT [Suspect]
     Route: 045

REACTIONS (3)
  - DRUG DOSE OMISSION [None]
  - WHEEZING [None]
  - ASTHMA [None]
